FAERS Safety Report 15344993 (Version 3)
Quarter: 2018Q3

REPORT INFORMATION
  Report Type: Report from Study
  Country: None (occurrence: US)
  Receive Date: 20180903
  Receipt Date: 20180920
  Transmission Date: 20181010
  Serious: Yes (Other)
  Sender: FDA-Public Use
  Company Number: US-ABBVIE-18K-163-2472243-00

PATIENT
  Sex: Male
  Weight: 56.75 kg

DRUGS (4)
  1. HUMIRA [Suspect]
     Active Substance: ADALIMUMAB
     Indication: RHEUMATOID ARTHRITIS
     Route: 058
     Dates: start: 201710
  2. OXYCODONE [Concomitant]
     Active Substance: OXYCODONE
     Indication: RHEUMATOID ARTHRITIS
  3. DILAUDID [Concomitant]
     Active Substance: HYDROMORPHONE HYDROCHLORIDE
     Indication: RHEUMATOID ARTHRITIS
     Dosage: PAIN PUMP
  4. AMITRIPTYLINE [Concomitant]
     Active Substance: AMITRIPTYLINE
     Indication: SLEEP DISORDER THERAPY

REACTIONS (3)
  - Gait disturbance [Recovering/Resolving]
  - Foot deformity [Recovering/Resolving]
  - Pain in extremity [Recovering/Resolving]

NARRATIVE: CASE EVENT DATE: 201808
